FAERS Safety Report 10067871 (Version 3)
Quarter: 2014Q2

REPORT INFORMATION
  Report Type: Spontaneous
  Country: BR (occurrence: BR)
  Receive Date: 20140409
  Receipt Date: 20140602
  Transmission Date: 20141212
  Serious: Yes (Other)
  Sender: FDA-Public Use
  Company Number: BR-SA-2014SA040639

PATIENT
  Age: 47 Year
  Sex: Female
  Weight: 66 kg

DRUGS (14)
  1. LANTUS [Suspect]
     Indication: TYPE 2 DIABETES MELLITUS
     Dosage: DOSE:56 UNIT(S)
     Route: 058
     Dates: start: 2011
  2. CLIKSTAR [Concomitant]
     Indication: INJECTION
  3. DIOVAN [Concomitant]
     Indication: BLOOD PRESSURE
     Dosage: ABOUT 9 MONTHS AGO
     Dates: start: 2013
  4. AMLODIPINE [Concomitant]
     Indication: BLOOD PRESSURE
     Dosage: ABOUT 4 MONTHS AGO
     Dates: start: 2013
  5. HYDROCHLOROTHIAZIDE [Concomitant]
     Indication: DIURETIC THERAPY
  6. DIOSMIN/HESPERIDIN [Concomitant]
     Indication: FLATULENCE
     Dosage: START: ABOUT 2 YEARS AGO
     Dates: start: 2012
  7. SEROQUEL [Concomitant]
     Indication: SLEEP DISORDER
     Dates: start: 2013
  8. CARBAMAZEPINE [Concomitant]
     Indication: PAIN
  9. FLUOXETINE HYDROCHLORIDE [Concomitant]
     Indication: FEELING OF RELAXATION
     Dosage: ABOUT 4 MONTHS AGO
     Dates: start: 201312
  10. KETOROLAC TROMETHAMINE [Concomitant]
     Indication: PAIN
     Dates: start: 2013
  11. DIAZEPAM [Concomitant]
     Indication: SLEEP DISORDER
     Dates: start: 2013
  12. BACTRIM [Concomitant]
     Indication: BACTERIAL INFECTION
     Dates: start: 2013
  13. CIPROFLOXACIN [Concomitant]
     Indication: OSTEOMYELITIS
     Dates: start: 2014
  14. ALL OTHER THERAPEUTIC PRODUCTS [Concomitant]
     Indication: PAIN
     Dosage: ABOUT 2 MONTHS AGO
     Dates: start: 2014

REACTIONS (7)
  - Osteomyelitis [Not Recovered/Not Resolved]
  - Sciatic nerve injury [Not Recovered/Not Resolved]
  - Intervertebral disc protrusion [Not Recovered/Not Resolved]
  - Peripheral swelling [Not Recovered/Not Resolved]
  - Back pain [Not Recovered/Not Resolved]
  - Pain [Not Recovered/Not Resolved]
  - Bacterial infection [Not Recovered/Not Resolved]
